FAERS Safety Report 14694359 (Version 3)
Quarter: 2018Q2

REPORT INFORMATION
  Report Type: Spontaneous
  Country: CN (occurrence: CN)
  Receive Date: 20180329
  Receipt Date: 20180427
  Transmission Date: 20180711
  Serious: Yes (Other)
  Sender: FDA-Public Use
  Company Number: CN-ASTRAZENECA-2018SE38129

PATIENT
  Age: 58 Year
  Sex: Female

DRUGS (2)
  1. IRESSA [Suspect]
     Active Substance: GEFITINIB
     Indication: LUNG ADENOCARCINOMA
     Route: 048
     Dates: start: 20170605
  2. TAGRISSO [Concomitant]
     Active Substance: OSIMERTINIB

REACTIONS (7)
  - Drug resistance [Unknown]
  - Feeling hot [Unknown]
  - Asthenia [Unknown]
  - Malignant neoplasm progression [Unknown]
  - Abdominal discomfort [Unknown]
  - Tongue discolouration [Unknown]
  - Cough [Recovered/Resolved]
